FAERS Safety Report 12804739 (Version 1)
Quarter: 2016Q4

REPORT INFORMATION
  Report Type: Spontaneous
  Country: US (occurrence: US)
  Receive Date: 20161003
  Receipt Date: 20161003
  Transmission Date: 20170207
  Serious: No
  Sender: FDA-Public Use
  Company Number: US-009507513-1606USA009372

PATIENT
  Sex: Female

DRUGS (2)
  1. TICE BCG [Suspect]
     Active Substance: BACILLUS CALMETTE-GUERIN SUBSTRAIN TICE LIVE ANTIGEN
     Indication: BLADDER CANCER
  2. BCG VACCINE USP [Suspect]
     Active Substance: BCG VACCINE
     Indication: BLADDER CANCER
     Route: 043

REACTIONS (3)
  - Wrong drug administered [Unknown]
  - Product use issue [Unknown]
  - No adverse event [Unknown]
